FAERS Safety Report 10250757 (Version 2)
Quarter: 2014Q3

REPORT INFORMATION
  Report Type: Spontaneous
  Country: IT (occurrence: IT)
  Receive Date: 20140620
  Receipt Date: 20140711
  Transmission Date: 20150326
  Serious: Yes (Other)
  Sender: FDA-Public Use
  Company Number: IT-AMGEN-ITASP2014045569

PATIENT

DRUGS (1)
  1. NPLATE [Suspect]
     Active Substance: ROMIPLOSTIM
     Indication: IMMUNE THROMBOCYTOPENIC PURPURA
     Dosage: 2.43 MUG/KG, QWK
     Route: 065

REACTIONS (3)
  - Therapeutic response decreased [Unknown]
  - Acute myocardial infarction [Unknown]
  - Phlebitis superficial [Unknown]
